FAERS Safety Report 9070552 (Version 1)
Quarter: 2013Q1

REPORT INFORMATION
  Report Type: Spontaneous
  Country: US (occurrence: US)
  Receive Date: 20130215
  Receipt Date: 20130215
  Transmission Date: 20140127
  Serious: Yes (Hospitalization)
  Sender: FDA-Public Use
  Company Number: US-JNJFOC-20130205504

PATIENT
  Sex: Female

DRUGS (3)
  1. NUCYNTA ER [Suspect]
     Indication: ANALGESIC THERAPY
     Dosage: 2 IN ONE DAY
     Route: 048
  2. NUCYNTA [Suspect]
     Indication: BREAKTHROUGH PAIN
     Route: 048
  3. UNKNOWN MEDICATION [Concomitant]
     Route: 065

REACTIONS (3)
  - Staphylococcal infection [Not Recovered/Not Resolved]
  - Drug administration error [Recovered/Resolved]
  - Drug ineffective [Recovered/Resolved]
